FAERS Safety Report 24186067 (Version 2)
Quarter: 2024Q3

REPORT INFORMATION
  Report Type: Report from Study
  Country: ES (occurrence: ES)
  Receive Date: 20240808
  Receipt Date: 20240809
  Transmission Date: 20241016
  Serious: Yes (Death)
  Sender: ABBVIE
  Company Number: ES-ABBVIE-5870058

PATIENT
  Sex: Female
  Weight: 70 kg

DRUGS (2)
  1. CARBIDOPA\LEVODOPA [Suspect]
     Active Substance: CARBIDOPA\LEVODOPA
     Indication: Parkinson^s disease
     Route: 050
     Dates: start: 20220318
  2. CARBIDOPA\LEVODOPA [Suspect]
     Active Substance: CARBIDOPA\LEVODOPA

REACTIONS (2)
  - Respiratory failure [Fatal]
  - Pulmonary embolism [Fatal]

NARRATIVE: CASE EVENT DATE: 20240101
